FAERS Safety Report 14014837 (Version 9)
Quarter: 2018Q2

REPORT INFORMATION
  Report Type: Spontaneous
  Country: US (occurrence: US)
  Receive Date: 20170927
  Receipt Date: 20180628
  Transmission Date: 20180711
  Serious: Yes (Hospitalization, Other)
  Sender: FDA-Public Use
  Company Number: US-PFIZER INC-2017416172

PATIENT
  Age: 65 Year
  Sex: Male

DRUGS (1)
  1. INLYTA [Suspect]
     Active Substance: AXITINIB
     Indication: NEOPLASM MALIGNANT
     Dosage: 2 MG, 2X/DAY(2 MG IN THE MORNING AND 2 MG IN THE NIGHT/ 4 MG DAILY)

REACTIONS (7)
  - Dyspepsia [Unknown]
  - Lymph nodes scan abnormal [Unknown]
  - Hernia [Unknown]
  - Impaired healing [Unknown]
  - Slow response to stimuli [Unknown]
  - Peripheral swelling [Unknown]
  - Dysphonia [Unknown]
